FAERS Safety Report 4335703-0 (Version None)
Quarter: 2004Q2

REPORT INFORMATION
  Report Type: 
  Country: None (occurrence: None)
  Receive Date: 20040409
  Receipt Date: 20040326
  Transmission Date: 20050107
  Serious: Yes (Other)
  Sender: FDA-Public Use
  Company Number: DK-GLAXOSMITHKLINE-B0328343A

PATIENT
  Age: 55 Year
  Sex: Female

DRUGS (8)
  1. LAMICTAL [Suspect]
     Indication: EPILEPSY
     Dosage: 50MG THREE TIMES PER DAY
  2. APYDAN [Concomitant]
  3. SELO-ZOK [Concomitant]
  4. COVERSYL [Concomitant]
  5. FUROSEMIDE [Concomitant]
  6. KALEORID [Concomitant]
  7. SALT [Concomitant]
  8. THYCAPZOL [Concomitant]

REACTIONS (2)
  - HEPATIC ENZYME INCREASED [None]
  - PERIPHERAL COLDNESS [None]
